FAERS Safety Report 7271623-X (Version None)
Quarter: 2011Q1

REPORT INFORMATION
  Report Type: 
  Country: None (occurrence: None)
  Receive Date: 20110203
  Receipt Date: 20110120
  Transmission Date: 20110831
  Serious: Yes (Hospitalization)
  Sender: FDA-Public Use
  Company Number: US-ELI_LILLY_AND_COMPANY-US201101005299

PATIENT
  Sex: Female

DRUGS (16)
  1. FORTEO [Suspect]
     Dosage: 20 UG, DAILY (1/D)
     Dates: start: 20100120
  2. FORTEO [Suspect]
     Dosage: 20 UG, DAILY (1/D)
     Dates: start: 20100120
  3. TOPROL-XL [Concomitant]
     Dosage: 50 MG, DAILY (1/D)
  4. ARICEPT [Concomitant]
     Dosage: 10 MG, DAILY (1/D)
  5. CYMBALTA [Concomitant]
     Dosage: 90 MG, DAILY (1/D)
  6. PLAQUENIL [Concomitant]
     Dosage: 200 MG, 2/D
  7. NAMENDA [Concomitant]
     Dosage: 10 MG, 2/D
  8. VALIUM [Concomitant]
     Dosage: 5 MG, 2/D
  9. FORTEO [Suspect]
     Indication: OSTEOPOROSIS
     Dosage: 20 UG, DAILY (1/D)
     Dates: end: 20101230
  10. PREDNISONE [Concomitant]
     Dosage: 5 MG, DAILY (1/D)
  11. VITAMIN D [Concomitant]
     Dosage: 50000 IU, WEEKLY (1/W)
  12. HYZAAR /01284801/ [Concomitant]
     Dosage: 12.5 MG, DAILY (1/D)
  13. METHOTREXATE [Concomitant]
     Dosage: UNK, WEEKLY (1/W)
  14. FOLIC ACID [Concomitant]
     Dosage: 1 MG, DAILY (1/D)
  15. MS CONTIN [Concomitant]
     Dosage: 15 MG, 2/D
  16. PRILOSEC [Concomitant]
     Dosage: 40 MG, DAILY (1/D)

REACTIONS (1)
  - SPINAL LAMINECTOMY [None]
